FAERS Safety Report 6443938-6 (Version None)
Quarter: 2009Q4

REPORT INFORMATION
  Report Type: 
  Country: None (occurrence: None)
  Receive Date: 20091113
  Receipt Date: 20091029
  Transmission Date: 20100525
  Serious: Yes (Hospitalization)
  Sender: FDA-Public Use
  Company Number: 2009110011

PATIENT
  Age: 65 Year
  Sex: Male
  Weight: 83 kg

DRUGS (8)
  1. TORSEMIDE [Suspect]
     Indication: HYPERTENSION
     Dosage: 10 MG (10 MG, 1 IN 1 D), ORAL
     Route: 048
     Dates: start: 20071101
  2. DEXAMETHASONE TAB [Suspect]
     Indication: METASTASES TO CENTRAL NERVOUS SYSTEM
     Dosage: DOSE REDUCTION TO 2MG/ DAY (4 MG, 3 IN 1 D), ORAL; 2 MG (2 MG, DAILY), ORAL
     Route: 048
     Dates: start: 20090701
  3. ENALAPRIL MALEATE [Concomitant]
  4. BISOPROLOL FUMARATE [Concomitant]
  5. DIGITOXIN INJ [Concomitant]
  6. ASPIRIN [Concomitant]
  7. OMEP (OMEPRAZOLE) [Concomitant]
  8. ACTRAPID NOVOLET (INSULIN HUMAN) [Concomitant]

REACTIONS (12)
  - ASTHENIA [None]
  - ATRIAL FIBRILLATION [None]
  - DECREASED ACTIVITY [None]
  - DRUG INTERACTION [None]
  - ELECTROCARDIOGRAM ST SEGMENT DEPRESSION [None]
  - GENERAL PHYSICAL HEALTH DETERIORATION [None]
  - HAEMATOCRIT DECREASED [None]
  - HAEMOGLOBIN DECREASED [None]
  - HYPERGLYCAEMIA [None]
  - INFECTION [None]
  - METASTASES TO CENTRAL NERVOUS SYSTEM [None]
  - OEDEMA PERIPHERAL [None]
